FAERS Safety Report 25578820 (Version 1)
Quarter: 2025Q3

REPORT INFORMATION
  Report Type: Spontaneous
  Country: US (occurrence: US)
  Receive Date: 20250718
  Receipt Date: 20250718
  Transmission Date: 20251021
  Serious: Yes (Other)
  Sender: AMGEN
  Company Number: US-AMGEN-USASP2025136492

PATIENT

DRUGS (2)
  1. BEVACIZUMAB [Suspect]
     Active Substance: BEVACIZUMAB
     Indication: Neoplasm
     Route: 065
  2. CYCLOPHOSPHAMIDE [Concomitant]
     Active Substance: CYCLOPHOSPHAMIDE
     Route: 048

REACTIONS (8)
  - Nephropathy toxic [Unknown]
  - Cardiotoxicity [Unknown]
  - Skin toxicity [Unknown]
  - Toxicity to various agents [Unknown]
  - Ejection fraction abnormal [Unknown]
  - Ejection fraction decreased [Unknown]
  - Hypertension [Unknown]
  - Off label use [Unknown]
